FAERS Safety Report 20095025 (Version 9)
Quarter: 2022Q2

REPORT INFORMATION
  Report Type: Report from Study
  Country: CA (occurrence: CA)
  Receive Date: 20211122
  Receipt Date: 20220514
  Transmission Date: 20220721
  Serious: Yes (Other)
  Sender: FDA-Public Use
  Company Number: CA-BRISTOL-MYERS SQUIBB COMPANY-BMS-2021-059832

PATIENT
  Age: 77 Year
  Sex: Male
  Weight: 87 kg

DRUGS (15)
  1. NIVOLUMAB [Suspect]
     Active Substance: NIVOLUMAB
     Indication: Pleural mesothelioma
     Dosage: 3 MILLIGRAM/KILOGRAM, Q2WK
     Route: 065
     Dates: start: 20210506
  2. NIVOLUMAB [Suspect]
     Active Substance: NIVOLUMAB
     Dosage: 259 MG Q2WK
     Route: 065
     Dates: start: 20210603
  3. NIVOLUMAB [Suspect]
     Active Substance: NIVOLUMAB
     Dosage: 3MG/KG Q2WK AT 222MG
     Route: 042
     Dates: start: 20210603
  4. NIVOLUMAB [Suspect]
     Active Substance: NIVOLUMAB
     Dosage: 3MG/KG Q2WK AT 225MG
     Route: 042
     Dates: start: 20210603
  5. NIVOLUMAB [Suspect]
     Active Substance: NIVOLUMAB
     Route: 042
     Dates: start: 20210603
  6. NIVOLUMAB [Suspect]
     Active Substance: NIVOLUMAB
     Route: 042
     Dates: start: 20210603
  7. IPILIMUMAB [Suspect]
     Active Substance: IPILIMUMAB
     Indication: Pleural mesothelioma
     Dosage: 1 MILLIGRAM/KILOGRAM, Q6WK
     Route: 065
     Dates: start: 20210506
  8. IPILIMUMAB [Suspect]
     Active Substance: IPILIMUMAB
     Dosage: 86.2 MG Q6WK
     Route: 042
     Dates: start: 20210603
  9. IPILIMUMAB [Suspect]
     Active Substance: IPILIMUMAB
     Route: 042
     Dates: start: 20210603
  10. HYDROXYZINE [Suspect]
     Active Substance: HYDROXYZINE HYDROCHLORIDE
     Indication: Pruritus
     Dosage: UNK
     Route: 065
  11. NIVOLUMAB [Suspect]
     Active Substance: NIVOLUMAB
     Dosage: 3MG/KG Q2WK AT 225MG
     Route: 042
     Dates: start: 20210603
  12. NIVOLUMAB [Suspect]
     Active Substance: NIVOLUMAB
     Dosage: 259 MG Q2WK
     Route: 065
     Dates: start: 20210603
  13. NIVOLUMAB [Suspect]
     Active Substance: NIVOLUMAB
     Dosage: 3 MILLIGRAM/KILOGRAM, Q2WK
     Route: 065
     Dates: start: 20210506
  14. NIVOLUMAB [Suspect]
     Active Substance: NIVOLUMAB
     Route: 042
     Dates: start: 20210603
  15. TYLENOL [Concomitant]
     Active Substance: ACETAMINOPHEN
     Indication: Product used for unknown indication
     Dosage: UNK
     Route: 065

REACTIONS (48)
  - COVID-19 [Unknown]
  - Haematochezia [Unknown]
  - Erythema [Unknown]
  - Urinary incontinence [Unknown]
  - Constipation [Recovered/Resolved]
  - Cough [Not Recovered/Not Resolved]
  - Blood blister [Recovering/Resolving]
  - Oedema peripheral [Recovering/Resolving]
  - Colour blindness acquired [Unknown]
  - Skin exfoliation [Unknown]
  - Confusional state [Unknown]
  - Dizziness [Unknown]
  - Ageusia [Unknown]
  - Decreased appetite [Unknown]
  - Weight fluctuation [Unknown]
  - Hypotension [Unknown]
  - Oral fungal infection [Unknown]
  - Memory impairment [Unknown]
  - Dry skin [Unknown]
  - Dyspepsia [Unknown]
  - Anxiety [Unknown]
  - Somnolence [Unknown]
  - Lymphoedema [Unknown]
  - Weight decreased [Unknown]
  - Dry mouth [Unknown]
  - Dyspnoea [Unknown]
  - Muscle atrophy [Unknown]
  - Fatigue [Unknown]
  - Malaise [Unknown]
  - Arthralgia [Unknown]
  - Weight increased [Unknown]
  - Contusion [Unknown]
  - Rash pruritic [Unknown]
  - Back pain [Recovering/Resolving]
  - Insomnia [Unknown]
  - Increased tendency to bruise [Recovered/Resolved]
  - Rhinorrhoea [Unknown]
  - Nasopharyngitis [Unknown]
  - Pruritus genital [Unknown]
  - Paraesthesia [Recovered/Resolved]
  - Neck pain [Unknown]
  - Musculoskeletal stiffness [Unknown]
  - Faeces hard [Unknown]
  - Laryngitis [Unknown]
  - Heart rate decreased [Unknown]
  - Bacterial food poisoning [Recovering/Resolving]
  - Product dose omission issue [Unknown]
  - Condition aggravated [Unknown]

NARRATIVE: CASE EVENT DATE: 20210601
